FAERS Safety Report 8458089-9 (Version None)
Quarter: 2012Q2

REPORT INFORMATION
  Report Type: 
  Country: None (occurrence: None)
  Receive Date: 20120622
  Receipt Date: 20120611
  Transmission Date: 20120825
  Serious: Yes (Other)
  Sender: FDA-Public Use
  Company Number: US-JNJFOC-20120606768

PATIENT
  Sex: Female
  Weight: 68.04 kg

DRUGS (8)
  1. AMLODIPINE BESYLATE AND BENAZEPRIL HCL [Concomitant]
     Indication: BLOOD PRESSURE
     Route: 048
  2. KLOR-CON [Concomitant]
     Indication: ELECTROLYTE SUBSTITUTION THERAPY
     Route: 048
  3. VITAMIN [Concomitant]
     Indication: PRODUCT USED FOR UNKNOWN INDICATION
     Route: 048
  4. PRADAXA [Suspect]
     Indication: ATRIAL FIBRILLATION
     Route: 065
     Dates: end: 20120608
  5. DIPHENHYDRAMINE HCL [Concomitant]
     Indication: SLEEP DISORDER THERAPY
     Route: 048
  6. EXTRA STRENGTH TYLENOL PM [Suspect]
     Indication: PRODUCT USED FOR UNKNOWN INDICATION
     Dosage: TOOK 5 YEARS AGO (DOSAGE AND FREQUENCY UNSPECIFIED)
     Route: 048
     Dates: end: 20070101
  7. FLECAINIDE ACETATE [Concomitant]
     Indication: HEART RATE
     Route: 048
  8. FUROSEMIDE [Concomitant]
     Indication: DIURETIC THERAPY
     Route: 048

REACTIONS (3)
  - GASTRIC ULCER [None]
  - ATRIAL FIBRILLATION [None]
  - EYE HAEMORRHAGE [None]
